FAERS Safety Report 10699877 (Version 1)
Quarter: 2015Q1

REPORT INFORMATION
  Report Type: Spontaneous
  Country: FR (occurrence: FR)
  Receive Date: 20150109
  Receipt Date: 20150109
  Transmission Date: 20150721
  Serious: Yes (Hospitalization)
  Sender: FDA-Public Use
  Company Number: PHHY2015FR000881

PATIENT
  Age: 66 Year
  Sex: Female

DRUGS (8)
  1. URBANYL [Concomitant]
     Active Substance: CLOBAZAM
     Indication: EPILEPSY
     Dosage: 2 DF, QD
     Route: 048
  2. TEGRETOL [Interacting]
     Active Substance: CARBAMAZEPINE
     Dosage: 600 MG, DAILY
     Route: 048
  3. DIAMOX SEQUELS [Interacting]
     Active Substance: ACETAZOLAMIDE
     Indication: PRODUCT USED FOR UNKNOWN INDICATION
     Dosage: 2 DF, QD
     Route: 048
     Dates: start: 20141127, end: 20141204
  4. DEPAKINE CHRONO [Concomitant]
     Active Substance: VALPROATE SODIUM
     Indication: EPILEPSY
     Dosage: 3 DF, QD
     Route: 048
  5. FLECAINE [Concomitant]
     Active Substance: FLECAINIDE
     Indication: PAROXYSMAL ARRHYTHMIA
     Dosage: 100 MG, UNK
     Route: 048
     Dates: start: 2011
  6. TEGRETOL [Interacting]
     Active Substance: CARBAMAZEPINE
     Dosage: 1.75 DF, (TEGRETOL LP)
     Route: 048
     Dates: start: 20141204
  7. TEGRETOL [Suspect]
     Active Substance: CARBAMAZEPINE
     Indication: EPILEPSY
     Dosage: 2 DF, QD
     Route: 048
     Dates: start: 19970101, end: 20141204
  8. ATENOLOL. [Concomitant]
     Active Substance: ATENOLOL
     Indication: PAROXYSMAL ARRHYTHMIA
     Dosage: UNK
     Route: 065
     Dates: start: 2011

REACTIONS (4)
  - Balance disorder [Recovered/Resolved]
  - Fall [Recovered/Resolved]
  - Dizziness [Recovered/Resolved]
  - Acute vestibular syndrome [Recovered/Resolved]

NARRATIVE: CASE EVENT DATE: 20141202
